FAERS Safety Report 10338104 (Version 4)
Quarter: 2014Q4

REPORT INFORMATION
  Report Type: Report from Study
  Country: CO (occurrence: CO)
  Receive Date: 20140724
  Receipt Date: 20141010
  Transmission Date: 20150528
  Serious: Yes (Death)
  Sender: FDA-Public Use
  Company Number: CO-ROCHE-1438745

PATIENT
  Age: 86 Year
  Sex: Male
  Weight: 59 kg

DRUGS (6)
  1. FERROUS SULFATE [Concomitant]
     Active Substance: FERROUS SULFATE\FERROUS SULFATE, DRIED
     Indication: ANAEMIA
     Route: 065
     Dates: start: 20140331, end: 20140712
  2. FLUOXETINE [Concomitant]
     Active Substance: FLUOXETINE\FLUOXETINE HYDROCHLORIDE
     Indication: SENILE DEMENTIA
     Route: 065
     Dates: start: 201110, end: 20140712
  3. CLONAZEPAM. [Concomitant]
     Active Substance: CLONAZEPAM
     Indication: SENILE DEMENTIA
     Dosage: 4 DROPS/2.5 ML
     Route: 065
     Dates: start: 201110, end: 20140712
  4. HALOPERIDOL. [Concomitant]
     Active Substance: HALOPERIDOL
     Indication: SENILE DEMENTIA
     Dosage: 8 DROPS/2 ML
     Route: 065
     Dates: start: 201110, end: 20140712
  5. VISMODEGIB [Suspect]
     Active Substance: VISMODEGIB
     Indication: BASAL CELL CARCINOMA
     Route: 048
     Dates: start: 20130523, end: 20140712
  6. ACETAMINOPHEN TABLETS [Concomitant]
     Indication: INFLUENZA
     Route: 065
     Dates: start: 20131024, end: 20140712

REACTIONS (1)
  - Myocardial infarction [Fatal]

NARRATIVE: CASE EVENT DATE: 20140713
